FAERS Safety Report 16637276 (Version 1)
Quarter: 2019Q3

REPORT INFORMATION
  Report Type: Spontaneous
  Country: US (occurrence: US)
  Receive Date: 20190726
  Receipt Date: 20190726
  Transmission Date: 20191004
  Serious: No
  Sender: FDA-Public Use
  Company Number: US-PERRIGO-19US001844

PATIENT
  Age: 87 Year
  Sex: Male
  Weight: 83.9 kg

DRUGS (17)
  1. FLONASE                            /00908302/ [Concomitant]
     Active Substance: MOMETASONE FUROATE
     Indication: PERENNIAL ALLERGY
     Dosage: UNK
     Route: 065
  2. ACETAMINOPHEN. [Concomitant]
     Active Substance: ACETAMINOPHEN
     Indication: BACK PAIN
     Dosage: 650 MG
     Route: 065
     Dates: start: 2009
  3. PREDNISONE. [Concomitant]
     Active Substance: PREDNISONE
     Indication: BACK PAIN
     Dosage: UNK
     Route: 065
     Dates: start: 201901
  4. ACETAMINOPHEN. [Concomitant]
     Active Substance: ACETAMINOPHEN
     Indication: ARTHRALGIA
  5. DULOXETINE. [Concomitant]
     Active Substance: DULOXETINE
     Indication: BACK PAIN
     Dosage: UNK
     Route: 065
     Dates: start: 2009
  6. DULOXETINE. [Concomitant]
     Active Substance: DULOXETINE
     Indication: ARTHRALGIA
  7. FUROSEMIDE. [Concomitant]
     Active Substance: FUROSEMIDE
     Indication: HYPERTENSION
     Dosage: UNK
     Route: 065
     Dates: start: 1998
  8. PREDNISONE. [Concomitant]
     Active Substance: PREDNISONE
     Indication: ARTHRALGIA
  9. RAMIPRIL. [Concomitant]
     Active Substance: RAMIPRIL
     Indication: HYPERTENSION
     Dosage: UNK
     Route: 065
     Dates: start: 201901
  10. METFORMIN [Concomitant]
     Active Substance: METFORMIN HYDROCHLORIDE
     Indication: TYPE 2 DIABETES MELLITUS
     Dosage: UNK
     Route: 065
     Dates: start: 2018
  11. CETIRIZINE [Concomitant]
     Active Substance: CETIRIZINE HYDROCHLORIDE
     Indication: PERENNIAL ALLERGY
     Dosage: UNK
     Route: 065
     Dates: start: 2016
  12. MINOXIDIL. [Suspect]
     Active Substance: MINOXIDIL
     Indication: ALOPECIA
     Dosage: 1 ML, BID
     Route: 061
     Dates: start: 201901
  13. TAMSULOSIN [Concomitant]
     Active Substance: TAMSULOSIN
     Indication: PROSTATOMEGALY
     Dosage: UNK
     Route: 065
     Dates: start: 2008
  14. METOPROLOL. [Concomitant]
     Active Substance: METOPROLOL
     Indication: HEART RATE DECREASED
     Dosage: UNK
     Route: 065
     Dates: start: 2016
  15. VITAMINS NOS [Concomitant]
     Active Substance: VITAMINS
     Indication: SUPPLEMENTATION THERAPY
     Dosage: UNK
     Route: 065
  16. RANITIDINE. [Concomitant]
     Active Substance: RANITIDINE
     Indication: GASTRIC PH DECREASED
     Dosage: 150 MG, PRN
     Route: 065
     Dates: start: 1998
  17. MINOXIDIL. [Concomitant]
     Active Substance: MINOXIDIL
     Indication: HYPERTENSION
     Dosage: 10 MG
     Route: 048
     Dates: end: 201901

REACTIONS (3)
  - Drug ineffective [Unknown]
  - Blood pressure decreased [Unknown]
  - Expired product administered [Not Recovered/Not Resolved]

NARRATIVE: CASE EVENT DATE: 201901
